FAERS Safety Report 13268259 (Version 2)
Quarter: 2017Q2

REPORT INFORMATION
  Report Type: Spontaneous
  Country: IT (occurrence: IT)
  Receive Date: 20170224
  Receipt Date: 20170412
  Transmission Date: 20170830
  Serious: Yes (Other)
  Sender: FDA-Public Use
  Company Number: IT-PFIZER INC-2017076337

PATIENT
  Sex: Female
  Weight: 40 kg

DRUGS (2)
  1. NEURONTIN [Suspect]
     Active Substance: GABAPENTIN
     Indication: EPILEPSY
     Dosage: 1200 MG, DAILY (3 CAPSULES IN THE MORNING, 4 CAPSULES AT LUNCH, 5 CAPSULES AT THE DINNER)
     Route: 048
  2. NEURONTIN [Suspect]
     Active Substance: GABAPENTIN
     Indication: NEURALGIA

REACTIONS (5)
  - Pyrexia [Recovered/Resolved]
  - Cerebral disorder [Unknown]
  - Speech disorder [Unknown]
  - Device related infection [Unknown]
  - Epilepsy [Recovered/Resolved]

NARRATIVE: CASE EVENT DATE: 201701
